FAERS Safety Report 8590798-3 (Version None)
Quarter: 2012Q3

REPORT INFORMATION
  Report Type: 
  Country: None (occurrence: None)
  Receive Date: 20120731
  Receipt Date: 20120717
  Transmission Date: 20120928
  Serious: Yes (Hospitalization, Other)
  Sender: FDA-Public Use
  Company Number: 1357381

PATIENT
  Sex: Male

DRUGS (2)
  1. RALTITREXED DISODIUM [Suspect]
     Indication: COLON CANCER
     Dosage: 4 CYCLES, UNKNOWN, UNKNOWN
  2. LEUCOVORIN CALCIUM [Suspect]
     Dosage: 200 MG MILLIGRAM(S), 1 DAY, UNKNOWN

REACTIONS (8)
  - AGRANULOCYTOSIS [None]
  - PANCYTOPENIA [None]
  - DIARRHOEA [None]
  - EPILEPSY [None]
  - BLOOD BILIRUBIN INCREASED [None]
  - BLOOD CREATININE INCREASED [None]
  - MUCOSAL INFLAMMATION [None]
  - INTERNATIONAL NORMALISED RATIO INCREASED [None]
